FAERS Safety Report 12244167 (Version 2)
Quarter: 2016Q2

REPORT INFORMATION
  Report Type: Spontaneous
  Country: FI (occurrence: FI)
  Receive Date: 20160406
  Receipt Date: 20160412
  Transmission Date: 20160815
  Serious: Yes (Death, Other)
  Sender: FDA-Public Use
  Company Number: FI-ROCHE-1735906

PATIENT
  Age: 55 Year
  Sex: Female

DRUGS (6)
  1. RITUXIMAB [Suspect]
     Active Substance: RITUXIMAB
     Indication: VASCULITIS
     Route: 041
     Dates: start: 20141202
  2. PREDNISOLON [Concomitant]
     Active Substance: PREDNISOLONE
     Dosage: 40 MG + 20 MG
     Route: 065
     Dates: start: 201412
  3. CELLCEPT [Suspect]
     Active Substance: MYCOPHENOLATE MOFETIL\MYCOPHENOLATE MOFETIL HYDROCHLORIDE
     Indication: VASCULITIS
     Route: 065
     Dates: start: 201412
  4. CYCLOPHOSPHAMIDE. [Concomitant]
     Active Substance: CYCLOPHOSPHAMIDE
     Dosage: 6 INFUSIONS
     Route: 041
     Dates: start: 201401
  5. CYCLOPHOSPHAMIDE. [Concomitant]
     Active Substance: CYCLOPHOSPHAMIDE
     Route: 041
     Dates: start: 201504
  6. PREDNISOLON [Concomitant]
     Active Substance: PREDNISOLONE
     Indication: VASCULITIS
     Dosage: 60 MG + 40 MG
     Route: 065
     Dates: start: 201401

REACTIONS (7)
  - Cough [Unknown]
  - Deep vein thrombosis [Unknown]
  - Productive cough [Unknown]
  - Dyspnoea [Fatal]
  - Haemodynamic instability [Unknown]
  - Pneumothorax [Unknown]
  - Pulmonary embolism [Unknown]

NARRATIVE: CASE EVENT DATE: 201412
